FAERS Safety Report 13528457 (Version 1)
Quarter: 2017Q2

REPORT INFORMATION
  Report Type: Not Available
  Country: None (occurrence: US)
  Receive Date: 20170509
  Receipt Date: 20170509
  Transmission Date: 20170830
  Serious: Yes (Other)
  Sender: FDA-Public Use
  Company Number: UK-AKORN-57161

PATIENT
  Sex: Male

DRUGS (1)
  1. COSOPT [Suspect]
     Active Substance: DORZOLAMIDE HYDROCHLORIDE\TIMOLOL MALEATE

REACTIONS (7)
  - Product substitution issue [Unknown]
  - Glaucoma [Not Recovered/Not Resolved]
  - Vision blurred [None]
  - Eye pain [None]
  - Eyelid oedema [None]
  - Eye irritation [None]
  - Skin irritation [None]
